FAERS Safety Report 24612918 (Version 1)
Quarter: 2024Q4

REPORT INFORMATION
  Report Type: Spontaneous
  Country: US (occurrence: None)
  Receive Date: 20241112
  Receipt Date: 20241112
  Transmission Date: 20250114
  Serious: Yes (Hospitalization)
  Sender: Public
  Company Number: None

PATIENT
  Sex: Female

DRUGS (3)
  1. TADALAFIL [Suspect]
     Active Substance: TADALAFIL
     Indication: Pulmonary arterial hypertension
     Dosage: FREQUENCY : DAILY;?
     Route: 048
     Dates: start: 202410
  2. TREPROSTINIL [Concomitant]
     Active Substance: TREPROSTINIL
  3. OPSUMIT [Concomitant]
     Active Substance: MACITENTAN

REACTIONS (3)
  - Headache [None]
  - Pain [None]
  - Atrial flutter [None]
